FAERS Safety Report 11711823 (Version 1)
Quarter: 2015Q4

REPORT INFORMATION
  Report Type: Spontaneous
  Country: US (occurrence: US)
  Receive Date: 20151104
  Receipt Date: 20151104
  Transmission Date: 20160304
  Serious: No
  Sender: FDA-Public Use
  Company Number: US-ELI_LILLY_AND_COMPANY-US201104005445

PATIENT
  Sex: Female

DRUGS (2)
  1. FORTEO [Suspect]
     Active Substance: TERIPARATIDE
     Indication: OSTEOPOROSIS
     Dosage: UNK UNK, UNKNOWN
  2. FORTEO [Suspect]
     Active Substance: TERIPARATIDE
     Dosage: UNK, UNKNOWN

REACTIONS (15)
  - Myalgia [Not Recovered/Not Resolved]
  - Bone disorder [Unknown]
  - Cold sweat [Unknown]
  - Dizziness [Not Recovered/Not Resolved]
  - Vomiting [Unknown]
  - Nausea [Unknown]
  - Pain in extremity [Unknown]
  - Peripheral coldness [Not Recovered/Not Resolved]
  - Middle insomnia [Unknown]
  - Somnolence [Unknown]
  - Abdominal pain upper [Not Recovered/Not Resolved]
  - Night sweats [Unknown]
  - Pyrexia [Not Recovered/Not Resolved]
  - Bone pain [Not Recovered/Not Resolved]
  - Nervousness [Unknown]
